FAERS Safety Report 8895935 (Version 2)
Quarter: 2012Q4

REPORT INFORMATION
  Report Type: 
  Country: US (occurrence: US)
  Receive Date: 20121108
  Receipt Date: 20121127
  Transmission Date: 20130627
  Serious: Yes (Other)
  Sender: FDA-Public Use
  Company Number: US-009507513-1211USA000649

PATIENT
  Sex: Male

DRUGS (2)
  1. INTRONA [Suspect]
     Indication: NEUROENDOCRINE TUMOUR
     Dosage: 5 million IU, tiw
     Route: 058
     Dates: start: 201012
  2. SIMVASTATIN [Concomitant]
     Dosage: Every 3 weeks

REACTIONS (5)
  - Blindness transient [Recovered/Resolved]
  - Tremor [Unknown]
  - Gait disturbance [Unknown]
  - Kyphosis [Unknown]
  - Confusional state [Unknown]
